FAERS Safety Report 6059870-6 (Version None)
Quarter: 2009Q1

REPORT INFORMATION
  Report Type: 
  Country: None (occurrence: None)
  Receive Date: 20090130
  Receipt Date: 20090119
  Transmission Date: 20090719
  Serious: Yes (Hospitalization)
  Sender: FDA-Public Use
  Company Number: FR-ELI_LILLY_AND_COMPANY-FR200806001667

PATIENT
  Age: 72 Year
  Sex: Female
  Weight: 45 kg

DRUGS (7)
  1. FORTEO [Suspect]
     Indication: OSTEOPOROSIS
     Dosage: 20 UG, DAILY (1/D)
     Dates: start: 20070306
  2. LIPANTHYL [Concomitant]
     Dosage: UNK, UNKNOWN
     Route: 065
  3. DETENSIEL [Concomitant]
     Dosage: UNK, UNKNOWN
     Route: 065
  4. LOXEN [Concomitant]
     Dosage: UNK, UNKNOWN
     Route: 065
  5. COZAAR [Concomitant]
     Dosage: UNK, UNKNOWN
     Route: 065
  6. SEGLOR [Concomitant]
     Dosage: UNK, UNKNOWN
     Route: 065
  7. BROMAZEPAM [Concomitant]
     Dosage: UNK, UNKNOWN
     Route: 065

REACTIONS (3)
  - FOOT DEFORMITY [None]
  - LOCALISED INFECTION [None]
  - OSTEOARTHRITIS [None]
